FAERS Safety Report 9924869 (Version 7)
Quarter: 2014Q2

REPORT INFORMATION
  Report Type: Report from Study
  Country: IE (occurrence: IE)
  Receive Date: 20140226
  Receipt Date: 20140529
  Transmission Date: 20141212
  Serious: Yes (Death, Life-Threatening, Hospitalization)
  Sender: FDA-Public Use
  Company Number: IE-SA-2014SA021186

PATIENT
  Age: 69 Year
  Sex: Male

DRUGS (21)
  1. AFLIBERCEPT [Suspect]
     Indication: COLORECTAL CANCER METASTATIC
     Route: 041
     Dates: start: 20130808, end: 20130808
  2. AFLIBERCEPT [Suspect]
     Indication: COLORECTAL CANCER METASTATIC
     Route: 041
     Dates: start: 20140206, end: 20140206
  3. 5 FU [Suspect]
     Indication: COLORECTAL CANCER METASTATIC
     Route: 040
     Dates: start: 20130808, end: 20130808
  4. 5 FU [Suspect]
     Indication: COLORECTAL CANCER METASTATIC
     Route: 041
     Dates: start: 20130808, end: 20130808
  5. 5 FU [Suspect]
     Indication: COLORECTAL CANCER METASTATIC
     Route: 041
     Dates: start: 20140206, end: 20140206
  6. 5 FU [Suspect]
     Indication: COLORECTAL CANCER METASTATIC
     Route: 040
     Dates: start: 20140206, end: 20140206
  7. IRINOTECAN [Suspect]
     Indication: COLORECTAL CANCER METASTATIC
     Route: 041
     Dates: start: 20130808, end: 20130808
  8. IRINOTECAN [Suspect]
     Indication: COLORECTAL CANCER METASTATIC
     Route: 041
     Dates: start: 20140206, end: 20140206
  9. LEUCOVORIN [Suspect]
     Indication: COLORECTAL CANCER METASTATIC
     Route: 041
     Dates: start: 20130808, end: 20130808
  10. LEUCOVORIN [Suspect]
     Indication: COLORECTAL CANCER METASTATIC
     Route: 041
     Dates: start: 20140206, end: 20140206
  11. MYCOSTATIN [Concomitant]
     Indication: PROPHYLAXIS
     Dosage: MOUTHWASH
     Dates: start: 20130808
  12. LOPERAMIDE [Concomitant]
     Indication: PROPHYLAXIS
     Dates: start: 20130808
  13. FLUOR-KIN [Concomitant]
     Indication: PROPHYLAXIS
     Dosage: MOUTHWASH
     Dates: start: 20130808
  14. VALTREX [Concomitant]
     Indication: PROPHYLAXIS
     Dates: start: 20130919
  15. DIFLUCAN [Concomitant]
     Indication: MOUTH ULCERATION
     Dates: start: 20131003
  16. METOPROLOL [Concomitant]
     Dates: start: 20131011
  17. DOMPERIDONE [Concomitant]
     Dates: start: 20131031
  18. ZOPITAN [Concomitant]
     Dates: start: 20131114
  19. GALFER [Concomitant]
     Dates: start: 20131114
  20. CORTICOSTEROIDS [Concomitant]
     Indication: ANTIEMETIC SUPPORTIVE CARE
     Dates: start: 20140206, end: 20140208
  21. ANGIOTENSIN II ANTAGONISTS [Concomitant]
     Dates: start: 20140206

REACTIONS (1)
  - Pulmonary embolism [Fatal]
